FAERS Safety Report 7391599-4 (Version None)
Quarter: 2011Q2

REPORT INFORMATION
  Report Type: 
  Country: None (occurrence: None)
  Receive Date: 20110404
  Receipt Date: 20110330
  Transmission Date: 20111010
  Serious: Yes (Death)
  Sender: FDA-Public Use
  Company Number: PHHY2010BR74451

PATIENT
  Sex: Male

DRUGS (4)
  1. DIOVAN HCT [Suspect]
     Dosage: 320/12.5 MG
     Route: 048
  2. AUDAXONE [Concomitant]
  3. RASILEZ [Suspect]
     Dosage: 300 MG, UNK
     Route: 048
  4. CONCOR [Concomitant]
     Dosage: 5 MG, UNK

REACTIONS (1)
  - DEATH [None]
